FAERS Safety Report 8383006-X (Version None)
Quarter: 2012Q2

REPORT INFORMATION
  Report Type: 
  Country: None (occurrence: None)
  Receive Date: 20120524
  Receipt Date: 20120521
  Transmission Date: 20120825
  Serious: Yes (Hospitalization, Other)
  Sender: FDA-Public Use
  Company Number: PHHY2010AU093949

PATIENT
  Sex: Female
  Weight: 76 kg

DRUGS (5)
  1. ZOLEDRONOC ACID [Suspect]
     Dosage: 5 MG, UNK
     Route: 042
     Dates: start: 20090820
  2. MIRTAZAPINE [Concomitant]
     Dosage: 15 MG, DAILY
     Route: 048
  3. LEVOTHYROXINE SODIUM [Concomitant]
     Dosage: 50 UG, DAILY
     Route: 048
  4. NEXIUM [Concomitant]
     Dosage: 20 MG, DAILY
     Route: 048
  5. OXAZEPAM [Concomitant]
     Dosage: 15 MG, PRN
     Route: 048

REACTIONS (2)
  - BRONCHITIS [None]
  - ASTHENIA [None]
